FAERS Safety Report 12507457 (Version 2)
Quarter: 2016Q3

REPORT INFORMATION
  Report Type: Spontaneous
  Country: US (occurrence: US)
  Receive Date: 20160629
  Receipt Date: 20160713
  Transmission Date: 20161109
  Serious: No
  Sender: FDA-Public Use
  Company Number: US-TEVA-671459ACC

PATIENT
  Age: 17 Year
  Sex: Female
  Weight: 53.12 kg

DRUGS (1)
  1. TAKE ACTION [Suspect]
     Active Substance: LEVONORGESTREL
     Indication: POST COITAL CONTRACEPTION

REACTIONS (5)
  - Vaginal discharge [Recovered/Resolved]
  - Uterine pain [Recovered/Resolved]
  - Diarrhoea [Not Recovered/Not Resolved]
  - Back pain [Recovered/Resolved]
  - Abdominal pain upper [Not Recovered/Not Resolved]

NARRATIVE: CASE EVENT DATE: 20160621
